FAERS Safety Report 6585362-1 (Version None)
Quarter: 2010Q1

REPORT INFORMATION
  Report Type: 
  Country: None (occurrence: None)
  Receive Date: 20100217
  Receipt Date: 20100208
  Transmission Date: 20100710
  Serious: Yes (Other)
  Sender: FDA-Public Use
  Company Number: AU-BRISTOL-MYERS SQUIBB COMPANY-14979496

PATIENT
  Age: 73 Year
  Sex: Male

DRUGS (2)
  1. WARFARIN SODIUM [Suspect]
     Indication: AORTIC VALVE REPLACEMENT
  2. HEPARIN SODIUM [Suspect]

REACTIONS (3)
  - CEREBRAL ARTERY EMBOLISM [None]
  - GENITAL HAEMORRHAGE [None]
  - HEMIANOPIA HOMONYMOUS [None]
